FAERS Safety Report 22343024 (Version 1)
Quarter: 2023Q2

REPORT INFORMATION
  Report Type: Spontaneous
  Country: JP (occurrence: JP)
  Receive Date: 20230519
  Receipt Date: 20230519
  Transmission Date: 20230722
  Serious: Yes (Hospitalization, Other)
  Sender: FDA-Public Use
  Company Number: JP-R13005-16-00013

PATIENT

DRUGS (8)
  1. COSMEGEN [Suspect]
     Active Substance: DACTINOMYCIN
     Indication: Fibrosarcoma
     Dosage: 0.05 MG/M2, 30%-INCREASED DOSE AT INITIAL ADMINISTRATION
     Route: 065
     Dates: start: 20140605, end: 2014
  2. COSMEGEN [Suspect]
     Active Substance: DACTINOMYCIN
     Dosage: 0.05 MG/M2, 50%-INCREASED DOSE FROM THE THIRD ADMINISTRATION
     Route: 065
     Dates: start: 2014, end: 2014
  3. COSMEGEN [Suspect]
     Active Substance: DACTINOMYCIN
     Dosage: 0.05 MG/M2, 70%-INCREASED DOSE FROM THE SIXTH ADMINISTRATION
     Route: 065
     Dates: start: 2014, end: 2014
  4. COSMEGEN [Suspect]
     Active Substance: DACTINOMYCIN
     Dosage: 0.05 MG/M2, 100%-INCREASED DOSE IN THE EIGHT ADMINISTRATION
     Route: 065
     Dates: start: 2014, end: 2014
  5. ONCOVIN [Suspect]
     Active Substance: VINCRISTINE SULFATE
     Indication: Fibrosarcoma
     Dosage: 0.045 MG/KG, 30%-INCREASED DOSE AT INITIAL ADMINISTRATION
     Route: 065
     Dates: start: 20140605, end: 2014
  6. ONCOVIN [Suspect]
     Active Substance: VINCRISTINE SULFATE
     Dosage: 0.045 MG/KG, 50%-INCREASED DOSE FROM THE THIRD ADMINISTRATION
     Route: 065
     Dates: start: 2014, end: 2014
  7. ONCOVIN [Suspect]
     Active Substance: VINCRISTINE SULFATE
     Dosage: 0.045 MG/KG, 70%-INCREASED DOSE FROM THE SIXTH ADMINISTRATION
     Route: 065
     Dates: start: 2014, end: 2014
  8. ONCOVIN [Suspect]
     Active Substance: VINCRISTINE SULFATE
     Dosage: 0.045 MG/KG, 100%-INCREASED DOSE IN THE EIGHT ADMINISTRATION
     Route: 065
     Dates: start: 2014, end: 2014

REACTIONS (3)
  - Disseminated intravascular coagulation [Recovered/Resolved]
  - Venoocclusive disease [Recovered/Resolved]
  - Off label use [Unknown]

NARRATIVE: CASE EVENT DATE: 20140605
